FAERS Safety Report 5917090-7 (Version None)
Quarter: 2008Q4

REPORT INFORMATION
  Report Type: 
  Country: None (occurrence: None)
  Receive Date: 20081009
  Receipt Date: 20080929
  Transmission Date: 20090506
  Serious: Yes (Other)
  Sender: FDA-Public Use
  Company Number: 100#08#2008-04688

PATIENT
  Age: 3 Year
  Sex: Female

DRUGS (6)
  1. METHOTREXATE [Suspect]
     Indication: MEDULLOBLASTOMA
     Dosage: 400 MG/KG (9 G/M2), 200 MG
  2. VINCRISTINE [Concomitant]
  3. CISPLATIN [Concomitant]
  4. ETOPOSIDE [Concomitant]
  5. CYCLOPHOSPHAMIDE [Concomitant]
  6. TEMOZOLOMIDE [Concomitant]

REACTIONS (9)
  - ASCITES [None]
  - BONE MARROW FAILURE [None]
  - DRUG LEVEL INCREASED [None]
  - HEPATOMEGALY [None]
  - HEPATOTOXICITY [None]
  - MUCOSAL INFLAMMATION [None]
  - PROTHROMBIN TIME PROLONGED [None]
  - RENAL FAILURE ACUTE [None]
  - VOMITING [None]
